FAERS Safety Report 12829253 (Version 1)
Quarter: 2016Q4

REPORT INFORMATION
  Report Type: Spontaneous
  Country: US (occurrence: US)
  Receive Date: 20161007
  Receipt Date: 20161007
  Transmission Date: 20170207
  Serious: Yes (Other)
  Sender: FDA-Public Use
  Company Number: US-SA-2016SA019966

PATIENT
  Age: 51 Year
  Sex: Female

DRUGS (6)
  1. VITAMIN B12 [Concomitant]
     Active Substance: CYANOCOBALAMIN
  2. AUBAGIO [Suspect]
     Active Substance: TERIFLUNOMIDE
     Route: 048
  3. VITAMIN D [Concomitant]
     Active Substance: CHOLECALCIFEROL
  4. FISH OIL [Concomitant]
     Active Substance: FISH OIL
  5. MILK THISTLE [Concomitant]
     Active Substance: MILK THISTLE
  6. OMEPRAZOLE. [Concomitant]
     Active Substance: OMEPRAZOLE

REACTIONS (3)
  - Multiple sclerosis relapse [Unknown]
  - Hypoaesthesia [Unknown]
  - Hepatic enzyme increased [Recovering/Resolving]
